FAERS Safety Report 15065174 (Version 1)
Quarter: 2018Q2

REPORT INFORMATION
  Report Type: Spontaneous
  Country: GB (occurrence: GB)
  Receive Date: 20180626
  Receipt Date: 20180626
  Transmission Date: 20180711
  Serious: Yes (Hospitalization)
  Sender: FDA-Public Use
  Company Number: GB-TEVA-2018-GB-911425

PATIENT
  Sex: Female

DRUGS (8)
  1. ATORVASTATIN [Concomitant]
     Active Substance: ATORVASTATIN
  2. COLECALCIFEROL [Concomitant]
     Active Substance: CHOLECALCIFEROL
  3. AMIODARONE [Suspect]
     Active Substance: AMIODARONE
     Indication: ORTHOSTATIC HYPOTENSION
     Route: 065
  4. WARFARIN [Concomitant]
     Active Substance: WARFARIN
  5. FUROSEMIDE. [Concomitant]
     Active Substance: FUROSEMIDE
  6. BISOPROLOL [Concomitant]
     Active Substance: BISOPROLOL
  7. FERROUS FUMARATE [Concomitant]
     Active Substance: FERROUS FUMARATE
  8. SPIRONOLACTONE. [Concomitant]
     Active Substance: SPIRONOLACTONE

REACTIONS (3)
  - Thyroid function test abnormal [Unknown]
  - Thyroiditis acute [Unknown]
  - Liver function test abnormal [Unknown]
